FAERS Safety Report 16357566 (Version 1)
Quarter: 2019Q2

REPORT INFORMATION
  Report Type: Spontaneous
  Country: US (occurrence: US)
  Receive Date: 20190527
  Receipt Date: 20190527
  Transmission Date: 20190711
  Serious: No
  Sender: FDA-Public Use
  Company Number: US-GLAXOSMITHKLINE-US2019092043

PATIENT
  Age: 75 Year
  Sex: Male

DRUGS (2)
  1. EXCEDRIN MIGRAINE [Suspect]
     Active Substance: ACETAMINOPHEN\ASPIRIN\CAFFEINE
     Indication: BACK PAIN
  2. EXCEDRIN MIGRAINE [Suspect]
     Active Substance: ACETAMINOPHEN\ASPIRIN\CAFFEINE
     Indication: HEADACHE
     Dosage: UNK UNK, PRN( MOST OF THE TIME I TAKE 2, 3 OR POSSIBLY 4 CAPLETS IN A DAY)
     Route: 048

REACTIONS (4)
  - Drug effective for unapproved indication [Unknown]
  - Incorrect dose administered [Unknown]
  - Overdose [Unknown]
  - Product use in unapproved indication [Unknown]
